FAERS Safety Report 9388034 (Version 3)
Quarter: 2014Q1

REPORT INFORMATION
  Report Type: Spontaneous
  Country: US (occurrence: US)
  Receive Date: 20130708
  Receipt Date: 20140102
  Transmission Date: 20141002
  Serious: Yes (Hospitalization, Other)
  Sender: FDA-Public Use
  Company Number: US-BAYER-2013-081300

PATIENT
  Age: 34 Year
  Sex: Female
  Weight: 142.86 kg

DRUGS (8)
  1. MIRENA [Suspect]
     Indication: CONTRACEPTION
     Dosage: 20 MCG/24HR, CONT
     Route: 015
     Dates: start: 20100430, end: 20100702
  2. ALDOMET [Concomitant]
     Indication: BLOOD PRESSURE MANAGEMENT
  3. INSULIN [Concomitant]
     Indication: TYPE 2 DIABETES MELLITUS
  4. CIPRO [Concomitant]
  5. LEVEMIR [Concomitant]
  6. NOVOLOG [Concomitant]
  7. METFORMIN [Concomitant]
     Indication: TYPE 2 DIABETES MELLITUS
  8. OXYCODONE [Concomitant]
     Indication: PAIN MANAGEMENT

REACTIONS (34)
  - Uterine perforation [None]
  - Umbilical hernia, obstructive [None]
  - Abdominal strangulated hernia [None]
  - Umbilical hernia, obstructive [None]
  - Device dislocation [None]
  - Abdominal pain lower [None]
  - Pain [None]
  - Medical device pain [None]
  - Injury [None]
  - Device difficult to use [None]
  - General physical health deterioration [None]
  - Abdominal pain lower [None]
  - Abdominal pain [None]
  - Skin disorder [None]
  - Device related infection [None]
  - Incision site complication [None]
  - Incision site erythema [None]
  - Pyrexia [None]
  - Chills [None]
  - Decreased appetite [None]
  - Implant site extravasation [None]
  - Flatulence [None]
  - Incisional hernia [None]
  - Seroma [None]
  - Postoperative wound infection [None]
  - Wound secretion [None]
  - Device related infection [None]
  - Device issue [None]
  - Anxiety [None]
  - Fear of disease [None]
  - Migraine [None]
  - Depression [None]
  - Device dislocation [None]
  - Peritoneal adhesions [None]
